FAERS Safety Report 6467254-1 (Version None)
Quarter: 2009Q4

REPORT INFORMATION
  Report Type: 
  Country: None (occurrence: None)
  Receive Date: 20091202
  Receipt Date: 20091118
  Transmission Date: 20100525
  Serious: Yes (Hospitalization, Other)
  Sender: FDA-Public Use
  Company Number: FR-BRISTOL-MYERS SQUIBB COMPANY-14876296

PATIENT
  Age: 52 Year
  Sex: Female

DRUGS (8)
  1. GLUCOPHAGE [Suspect]
     Route: 048
  2. IOMERON-150 [Interacting]
     Route: 042
     Dates: start: 20081224
  3. OMNIPAQUE 140 [Interacting]
     Route: 042
     Dates: start: 20081223
  4. TEMESTA [Concomitant]
  5. DIAMICRON [Concomitant]
  6. KARDEGIC [Concomitant]
  7. RISPERDAL [Concomitant]
  8. STILNOX [Concomitant]
     Dosage: TABLET

REACTIONS (6)
  - CHEST PAIN [None]
  - DEHYDRATION [None]
  - DIARRHOEA [None]
  - DRUG INTERACTION [None]
  - RENAL FAILURE ACUTE [None]
  - VOMITING [None]
